FAERS Safety Report 14936561 (Version 1)
Quarter: 2018Q2

REPORT INFORMATION
  Report Type: Spontaneous
  Country: US (occurrence: US)
  Receive Date: 20180525
  Receipt Date: 20180525
  Transmission Date: 20180711
  Serious: No
  Sender: FDA-Public Use
  Company Number: US-TEVA-821646ACC

PATIENT
  Sex: Female

DRUGS (6)
  1. GABAPENTIN. [Concomitant]
     Active Substance: GABAPENTIN
  2. CLONIDINE. [Suspect]
     Active Substance: CLONIDINE
     Indication: HYPERTENSION
     Route: 023
     Dates: start: 20171030, end: 20171031
  3. ATENOLOL. [Concomitant]
     Active Substance: ATENOLOL
  4. PRAVASTATIN. [Concomitant]
     Active Substance: PRAVASTATIN
  5. SINGULAIR [Concomitant]
     Active Substance: MONTELUKAST SODIUM
  6. BUSPAR [Concomitant]
     Active Substance: BUSPIRONE HYDROCHLORIDE

REACTIONS (6)
  - Blood pressure decreased [Unknown]
  - Application site pain [Unknown]
  - Application site erythema [Unknown]
  - Application site irritation [Unknown]
  - Fatigue [Unknown]
  - Application site burn [Recovered/Resolved]
